FAERS Safety Report 7088245-6 (Version None)
Quarter: 2010Q4

REPORT INFORMATION
  Report Type: 
  Country: None (occurrence: None)
  Receive Date: 20101028
  Receipt Date: 20101013
  Transmission Date: 20110411
  Serious: Yes (Other)
  Sender: FDA-Public Use
  Company Number: US-1183711

PATIENT
  Age: 64 Year
  Sex: Male

DRUGS (2)
  1. BSS [Suspect]
     Dosage: (INTRAOCULAR)
     Route: 031
     Dates: start: 20100928, end: 20100928
  2. TETRACAINE HYDROCHLORIDE OPHTHALMIC SOLUTION [Suspect]
     Dosage: (OPHTHALMIC)
     Route: 047
     Dates: start: 20100928, end: 20100928

REACTIONS (1)
  - TOXIC ANTERIOR SEGMENT SYNDROME [None]
